FAERS Safety Report 7015427-1 (Version None)
Quarter: 2010Q3

REPORT INFORMATION
  Report Type: 
  Country: None (occurrence: None)
  Receive Date: 20100927
  Receipt Date: 20100921
  Transmission Date: 20110219
  Serious: Yes (Hospitalization)
  Sender: FDA-Public Use
  Company Number: PHHO2010US14378

PATIENT
  Sex: Male
  Weight: 92.5 kg

DRUGS (2)
  1. AFINITOR [Suspect]
     Indication: MANTLE CELL LYMPHOMA REFRACTORY
     Dosage: 10 MG, QD
     Route: 048
     Dates: start: 20100720, end: 20100917
  2. CARVEDILOL [Concomitant]

REACTIONS (3)
  - HYPOTENSION [None]
  - PNEUMONIA [None]
  - PYREXIA [None]
